FAERS Safety Report 9057233 (Version 1)
Quarter: 2013Q1

REPORT INFORMATION
  Report Type: Report from Study
  Country: US (occurrence: US)
  Receive Date: 20130131
  Receipt Date: 20130131
  Transmission Date: 20140127
  Serious: Yes (Congenital Anomaly)
  Sender: FDA-Public Use
  Company Number: US-VIIV HEALTHCARE LIMITED-A1009825A

PATIENT
  Age: 0 None
  Sex: Female
  Weight: 3 kg

DRUGS (6)
  1. RETROVIR [Suspect]
     Indication: ANTIVIRAL TREATMENT
     Dosage: 600MG PER DAY
     Route: 064
     Dates: start: 20111202, end: 20120315
  2. RETROVIR [Suspect]
     Indication: ANTIVIRAL TREATMENT
     Dosage: 980MGD PER DAY
     Route: 064
     Dates: start: 20120315, end: 20120315
  3. LEXIVA [Suspect]
     Indication: ANTIVIRAL TREATMENT
     Dosage: 1400MGD PER DAY
     Route: 064
  4. TRUVADA [Suspect]
     Indication: ANTIVIRAL TREATMENT
     Dosage: 1TAB PER DAY
     Route: 064
  5. NORVIR [Suspect]
     Indication: ANTIVIRAL TREATMENT
     Dosage: 100MGD PER DAY
     Route: 064
  6. KEPPRA [Concomitant]
     Indication: CONVULSION
     Dosage: 500MG TWICE PER DAY
     Route: 064

REACTIONS (2)
  - Polydactyly [Unknown]
  - Foetal exposure during pregnancy [Unknown]
